FAERS Safety Report 7691029-9 (Version None)
Quarter: 2011Q3

REPORT INFORMATION
  Report Type: 
  Country: None (occurrence: None)
  Receive Date: 20110818
  Receipt Date: 20110811
  Transmission Date: 20111222
  Serious: No
  Sender: FDA-Public Use
  Company Number: BR-ROCHE-735017

PATIENT

DRUGS (2)
  1. ISOTRETINOIN [Suspect]
     Dosage: ONE CAPSULE DAILY
     Route: 064
     Dates: start: 20100801, end: 20101001
  2. ISOTRETINOIN [Suspect]
     Indication: ACNE
     Route: 064
     Dates: start: 20090101, end: 20090101

REACTIONS (2)
  - NORMAL NEWBORN [None]
  - NO ADVERSE EVENT [None]
